FAERS Safety Report 4713562-1 (Version None)
Quarter: 2005Q3

REPORT INFORMATION
  Report Type: 
  Country: None (occurrence: None)
  Receive Date: 20050712
  Receipt Date: 20050627
  Transmission Date: 20060218
  Serious: Yes (Hospitalization)
  Sender: FDA-Public Use
  Company Number: 2005S1005460

PATIENT
  Age: 26 Year
  Sex: Female
  Weight: 81.6475 kg

DRUGS (2)
  1. HYDROXYCHLOROQUINE SULFATE TABLETS, USP (200 MG) [Suspect]
     Indication: SYSTEMIC LUPUS ERYTHEMATOSUS
     Dosage: 200 MG;BID;PO
     Route: 048
     Dates: start: 20050621, end: 20050623
  2. DICLOFENAC SODIUM [Concomitant]

REACTIONS (6)
  - BALANCE DISORDER [None]
  - DIPLOPIA [None]
  - HEADACHE [None]
  - HEMIPARESIS [None]
  - VISION BLURRED [None]
  - VOMITING [None]
